FAERS Safety Report 16154200 (Version 3)
Quarter: 2019Q3

REPORT INFORMATION
  Report Type: Spontaneous
  Country: US (occurrence: US)
  Receive Date: 20190403
  Receipt Date: 20190902
  Transmission Date: 20191004
  Serious: Yes (Other)
  Sender: FDA-Public Use
  Company Number: US-PFIZER INC-2019137079

PATIENT
  Age: 50 Year
  Sex: Male
  Weight: 73 kg

DRUGS (3)
  1. LYRICA [Suspect]
     Active Substance: PREGABALIN
     Dosage: 1 DF, 1X/DAY
  2. LYRICA [Suspect]
     Active Substance: PREGABALIN
     Dosage: 100 MG, 3X/DAY
     Route: 048
  3. LYRICA [Suspect]
     Active Substance: PREGABALIN
     Indication: NEUROPATHY PERIPHERAL
     Dosage: 3 DF, DAILY

REACTIONS (13)
  - Peripheral swelling [Unknown]
  - Withdrawal syndrome [Unknown]
  - Dyspepsia [Not Recovered/Not Resolved]
  - Nervousness [Not Recovered/Not Resolved]
  - Depression [Unknown]
  - Intentional product use issue [Unknown]
  - Foot deformity [Unknown]
  - Frustration tolerance decreased [Unknown]
  - Abdominal discomfort [Not Recovered/Not Resolved]
  - Neoplasm malignant [Unknown]
  - Feeling abnormal [Unknown]
  - Nausea [Not Recovered/Not Resolved]
  - Poor quality sleep [Not Recovered/Not Resolved]

NARRATIVE: CASE EVENT DATE: 20190823
